FAERS Safety Report 24799244 (Version 2)
Quarter: 2025Q1

REPORT INFORMATION
  Report Type: Spontaneous
  Country: CA (occurrence: CA)
  Receive Date: 20250102
  Receipt Date: 20250214
  Transmission Date: 20250408
  Serious: Yes (Death, Hospitalization, Other)
  Sender: CHATTEM
  Company Number: CA-OPELLA-2024OHG042139

PATIENT
  Age: 45 Year
  Sex: Male
  Weight: 85 kg

DRUGS (15)
  1. ALLEGRA [Suspect]
     Active Substance: FEXOFENADINE HYDROCHLORIDE
     Indication: Product used for unknown indication
  2. REPLAGAL [Suspect]
     Active Substance: AGALSIDASE ALFA
     Indication: Fabry^s disease
  3. REPLAGAL [Suspect]
     Active Substance: AGALSIDASE ALFA
     Dosage: Q2WEEKS
     Dates: start: 20200416
  4. REPLAGAL [Suspect]
     Active Substance: AGALSIDASE ALFA
  5. REPLAGAL [Suspect]
     Active Substance: AGALSIDASE ALFA
     Route: 042
  6. REPLAGAL [Suspect]
     Active Substance: AGALSIDASE ALFA
     Route: 042
  7. ASPIRIN [Concomitant]
     Active Substance: ASPIRIN
     Indication: Product used for unknown indication
  8. AMLODIPINE BESYLATE [Concomitant]
     Active Substance: AMLODIPINE BESYLATE
     Indication: Product used for unknown indication
  9. ATORVASTATIN CALCIUM [Concomitant]
     Active Substance: ATORVASTATIN CALCIUM
     Indication: Product used for unknown indication
  10. CARBAMAZEPINE [Concomitant]
     Active Substance: CARBAMAZEPINE
     Indication: Product used for unknown indication
  11. FOLIC ACID [Concomitant]
     Active Substance: FOLIC ACID
     Indication: Product used for unknown indication
  12. LOPERAMIDE [Concomitant]
     Active Substance: LOPERAMIDE
     Indication: Product used for unknown indication
  13. PREDNISONE [Concomitant]
     Active Substance: PREDNISONE
     Indication: Product used for unknown indication
  14. RAMIPRIL [Concomitant]
     Active Substance: RAMIPRIL
     Indication: Product used for unknown indication
  15. ALBUTEROL [Concomitant]
     Active Substance: ALBUTEROL
     Indication: Product used for unknown indication
     Dosage: 2 DOSAGE FORM, 4 EVERY 1 DAY

REACTIONS (27)
  - Cardiac arrest [Fatal]
  - Nasopharyngitis [Not Recovered/Not Resolved]
  - Sinusitis [Unknown]
  - Heat stroke [Unknown]
  - Pneumonia [Unknown]
  - Hypoaesthesia [Not Recovered/Not Resolved]
  - Nervousness [Unknown]
  - Cardiac disorder [Unknown]
  - Fatigue [Not Recovered/Not Resolved]
  - Chest pain [Not Recovered/Not Resolved]
  - Blood pressure increased [Recovering/Resolving]
  - Blood pressure systolic increased [Recovered/Resolved]
  - Animal bite [Not Recovered/Not Resolved]
  - Body temperature decreased [Unknown]
  - Agitation [Unknown]
  - Lower respiratory tract infection [Not Recovered/Not Resolved]
  - Joint swelling [Unknown]
  - Pain in extremity [Not Recovered/Not Resolved]
  - Peripheral swelling [Recovering/Resolving]
  - Hypersomnia [Not Recovered/Not Resolved]
  - Weight decreased [Unknown]
  - Economic problem [Not Recovered/Not Resolved]
  - Dyspnoea exertional [Not Recovered/Not Resolved]
  - Stress [Unknown]
  - Gait disturbance [Not Recovered/Not Resolved]
  - Somnolence [Not Recovered/Not Resolved]
  - Myocardial infarction [Unknown]

NARRATIVE: CASE EVENT DATE: 20200101
